FAERS Safety Report 5152109-5 (Version None)
Quarter: 2006Q4

REPORT INFORMATION
  Report Type: 
  Country: None (occurrence: None)
  Receive Date: 20061113
  Receipt Date: 20061113
  Transmission Date: 20070319
  Serious: Yes (Other)
  Sender: FDA-Public Use
  Company Number: None

PATIENT
  Age: 13 Year
  Sex: Male
  Weight: 43.0917 kg

DRUGS (1)
  1. CYMBALTA [Suspect]
     Indication: SOCIAL PHOBIA
     Dosage: 30 MG QD PO
     Route: 048
     Dates: start: 20061005, end: 20061019

REACTIONS (2)
  - HEADACHE [None]
  - PUPILS UNEQUAL [None]
